FAERS Safety Report 10215262 (Version 3)
Quarter: 2014Q2

REPORT INFORMATION
  Report Type: Report from Study
  Country: IN (occurrence: IN)
  Receive Date: 20140603
  Receipt Date: 20140626
  Transmission Date: 20141212
  Serious: Yes (Death)
  Sender: FDA-Public Use
  Company Number: PHHY2013IN045205

PATIENT
  Age: 79 Year
  Sex: Male

DRUGS (5)
  1. ACLASTA [Suspect]
     Indication: OSTEOPOROSIS
     Dosage: 5 MG/100ML/YEAR
     Route: 042
     Dates: start: 20130418
  2. ACLASTA [Suspect]
     Indication: OSTEOMALACIA
  3. FORTEO [Concomitant]
     Indication: OSTEOPOROSIS
     Dosage: UNK UKN, UNK
     Route: 058
  4. BONISTEIN [Concomitant]
     Indication: BONE PAIN
     Dosage: UNK
     Route: 048
  5. NUMLO-AT [Concomitant]
     Indication: HYPERTENSION
     Dosage: UNK
     Route: 048

REACTIONS (3)
  - Death [Fatal]
  - Pain in extremity [Not Recovered/Not Resolved]
  - Osteoporosis [Unknown]
